FAERS Safety Report 9904881 (Version 3)
Quarter: 2015Q2

REPORT INFORMATION
  Report Type: Spontaneous
  Country: US (occurrence: US)
  Receive Date: 20140218
  Receipt Date: 20150420
  Transmission Date: 20150821
  Serious: Yes (Hospitalization, Other)
  Sender: FDA-Public Use
  Company Number: US-BAYER-2014-024856

PATIENT
  Age: 29 Year
  Sex: Female

DRUGS (2)
  1. NORCO [Concomitant]
     Active Substance: ACETAMINOPHEN\HYDROCODONE BITARTRATE
     Dosage: 5/325, 1-2 EVERY 6 HOURS, PRN
  2. MIRENA [Suspect]
     Active Substance: LEVONORGESTREL
     Indication: CONTRACEPTION
     Dosage: 20 MCG/24HR, CONT
     Route: 015
     Dates: start: 20110610, end: 20130219

REACTIONS (9)
  - Injury [None]
  - Medical device pain [None]
  - Medical device discomfort [None]
  - Scar [None]
  - Pain [None]
  - Device issue [None]
  - Device dislocation [None]
  - Embedded device [None]
  - Procedural pain [None]

NARRATIVE: CASE EVENT DATE: 201301
